FAERS Safety Report 20416602 (Version 4)
Quarter: 2022Q2

REPORT INFORMATION
  Report Type: Other
  Country: JP (occurrence: JP)
  Receive Date: 20220202
  Receipt Date: 20220426
  Transmission Date: 20220721
  Serious: Yes (Hospitalization, Other)
  Sender: FDA-Public Use
  Company Number: JP-CHUGAI-2021003221

PATIENT
  Age: 73 Year
  Sex: Male
  Weight: 61.2 kg

DRUGS (13)
  1. POLATUZUMAB VEDOTIN [Suspect]
     Active Substance: POLATUZUMAB VEDOTIN
     Indication: Diffuse large B-cell lymphoma
     Dosage: 21/MAY/2021, MOST RECENT DOSE OF POLATUZUMAB VEDOTIN.
     Route: 041
     Dates: start: 20210521, end: 20210521
  2. POLATUZUMAB VEDOTIN [Suspect]
     Active Substance: POLATUZUMAB VEDOTIN
     Route: 041
     Dates: start: 20210617, end: 20210617
  3. BENDAMUSTINE HYDROCHLORIDE [Suspect]
     Active Substance: BENDAMUSTINE HYDROCHLORIDE
     Indication: Diffuse large B-cell lymphoma
     Dosage: UNK
     Route: 041
     Dates: start: 20210429
  4. BENDAMUSTINE HYDROCHLORIDE [Suspect]
     Active Substance: BENDAMUSTINE HYDROCHLORIDE
     Dosage: UNK
     Route: 041
     Dates: start: 202105, end: 2021
  5. BENDAMUSTINE HYDROCHLORIDE [Suspect]
     Active Substance: BENDAMUSTINE HYDROCHLORIDE
     Dosage: UNK
     Route: 041
     Dates: start: 2021, end: 2021
  6. BENDAMUSTINE HYDROCHLORIDE [Suspect]
     Active Substance: BENDAMUSTINE HYDROCHLORIDE
     Dosage: UNK
     Route: 041
     Dates: end: 20210617
  7. RITUXIMAB [Suspect]
     Active Substance: RITUXIMAB
     Indication: Diffuse large B-cell lymphoma
     Route: 041
     Dates: start: 20210412, end: 20210616
  8. FLUCONAZOLE [Concomitant]
     Active Substance: FLUCONAZOLE
     Indication: Infection prophylaxis
     Dosage: UNK
     Route: 065
     Dates: start: 20210501
  9. ACYCLOVIR [Concomitant]
     Active Substance: ACYCLOVIR
     Indication: Infection prophylaxis
     Dosage: UNK
     Route: 065
     Dates: start: 20210429
  10. SULFAMETHOXAZOLE\TRIMETHOPRIM [Concomitant]
     Active Substance: SULFAMETHOXAZOLE\TRIMETHOPRIM
     Indication: Infection prophylaxis
     Dosage: UNK
     Route: 065
     Dates: start: 20210602
  11. BENDAMUSTINE HYDROCHLORIDE [Concomitant]
     Active Substance: BENDAMUSTINE HYDROCHLORIDE
     Indication: Diffuse large B-cell lymphoma
     Route: 041
     Dates: start: 20210520, end: 2021
  12. BENDAMUSTINE HYDROCHLORIDE [Concomitant]
     Active Substance: BENDAMUSTINE HYDROCHLORIDE
     Route: 041
     Dates: start: 2021, end: 2021
  13. RITUXIMAB [Concomitant]
     Active Substance: RITUXIMAB
     Indication: Diffuse large B-cell lymphoma
     Route: 065
     Dates: end: 2021

REACTIONS (4)
  - Cytomegalovirus infection [Recovered/Resolved]
  - Febrile neutropenia [Recovered/Resolved]
  - Anaemia [Not Recovered/Not Resolved]
  - Platelet count decreased [Not Recovered/Not Resolved]

NARRATIVE: CASE EVENT DATE: 20210526
